FAERS Safety Report 24318327 (Version 1)
Quarter: 2024Q3

REPORT INFORMATION
  Report Type: Spontaneous
  Country: US (occurrence: US)
  Receive Date: 20240913
  Receipt Date: 20240913
  Transmission Date: 20241016
  Serious: No
  Sender: DR REDDYS
  Company Number: US-drreddys-SPO/USA/23/0179534

PATIENT
  Age: 71 Year
  Sex: Male

DRUGS (1)
  1. CLOZAPINE [Suspect]
     Active Substance: CLOZAPINE
     Indication: Schizophrenia

REACTIONS (2)
  - Mean cell haemoglobin decreased [Recovered/Resolved]
  - Mean cell haemoglobin concentration decreased [Recovered/Resolved]

NARRATIVE: CASE EVENT DATE: 20230725
